FAERS Safety Report 8041105-6 (Version None)
Quarter: 2012Q1

REPORT INFORMATION
  Report Type: 
  Country: None (occurrence: None)
  Receive Date: 20120109
  Receipt Date: 20111228
  Transmission Date: 20120608
  Serious: Yes (Hospitalization)
  Sender: FDA-Public Use
  Company Number: 7103847

PATIENT
  Age: 64 Year
  Sex: Female

DRUGS (20)
  1. ACETAMINOPHEN [Concomitant]
  2. TRANSIPEG (MACROGOL) (MACROGOL 3350) [Concomitant]
  3. LYSANXIA (PRAZEPAM) (10 MG, TABLET) (PRAZEPAM) [Suspect]
     Indication: PRODUCT USED FOR UNKNOWN INDICATION
     Dosage: 2 DF (1 DF, 2 IN 1 D)
     Route: 048
     Dates: start: 20111207
  4. NORMACOL (NORMACOL   /00119401/) (STERCULIA GUM) [Concomitant]
  5. MEPRONIZINE (MEPRONIZINE  /00789201/) (COATED TABLET) (MEPROBAMATE, AC [Suspect]
     Dosage: 1 DF (1 DF, 1 IN 1 D)
     Route: 048
     Dates: start: 20111207
  6. CHIBRO CADRON (NEODECADRON) (NEOMYCINE, DEXAMETHASONE) [Suspect]
     Indication: PRODUCT USED FOR UNKNOWN INDICATION
     Route: 047
     Dates: start: 20111207
  7. KETOPROFEN [Suspect]
     Indication: PRODUCT USED FOR UNKNOWN INDICATION
     Dosage: 1 DF (1 DF, 1 IN 1 D)
     Route: 048
     Dates: start: 20111207
  8. PLAVIX (CLOPIDOGREL) (75 MG) (CLOPIDOGREL) [Concomitant]
  9. SYMBICORT (BUDESONIDE W/FORMOTEROL FUMARATE) (200) (BUDESONIDE, FORMOT [Concomitant]
  10. PANTOPRAZOLE (PANTOPRAZOLE) (40) (PANTOPRAZOLE) [Concomitant]
  11. PINAVERIUM BROMIDE (PINAVERIUM BROMIDE) (PINAVERIUM BROMIDE) [Suspect]
     Indication: PRODUCT USED FOR UNKNOWN INDICATION
     Dosage: 200 MG (100 MG, 2 IN 1 D)
     Route: 048
     Dates: start: 20111207
  12. LASIX [Suspect]
     Dosage: 1 DF (1 DF, 1 IN 1 D)
     Route: 048
     Dates: start: 20111207
  13. METHOCARBAMOL [Suspect]
     Indication: PRODUCT USED FOR UNKNOWN INDICATION
     Dosage: 6 DF (1 DF, 6 IN 1 D)
     Route: 048
     Dates: start: 20111207
  14. DESLORATADINE [Concomitant]
  15. SEROPRAM (CITALOPRAM HYDROBROMIDE) (20) (CITALOPRAM) [Concomitant]
  16. ALPRAZOLAM [Suspect]
     Indication: PRODUCT USED FOR UNKNOWN INDICATION
     Dosage: 100 MG (50 MG, 2 IN 1 D)
     Route: 048
     Dates: start: 20111207
  17. LIORESAL (BACLOFEN) (BACLOFENE) [Concomitant]
  18. LYRICA [Suspect]
     Dosage: 6 DF (1 DF, 6 IN 1 D)
     Route: 048
     Dates: start: 20111207
  19. METFORMIN (METFORMIN) (850 MG) (METFORMIN) [Concomitant]
  20. LEVOTHYROXINE SODIUM [Suspect]
     Indication: PRODUCT USED FOR UNKNOWN INDICATION
     Dosage: 1 DF (1 DF, 1 IN 1 D)
     Route: 048
     Dates: start: 20111207

REACTIONS (6)
  - MYOCLONUS [None]
  - INFLAMMATION [None]
  - WEIGHT INCREASED [None]
  - OLIGURIA [None]
  - METABOLIC ENCEPHALOPATHY [None]
  - CONFUSIONAL STATE [None]
